FAERS Safety Report 7583826-5 (Version None)
Quarter: 2011Q2

REPORT INFORMATION
  Report Type: 
  Country: None (occurrence: None)
  Receive Date: 20110630
  Receipt Date: 20110622
  Transmission Date: 20111010
  Serious: Yes (Other)
  Sender: FDA-Public Use
  Company Number: FR-ROCHE-785626

PATIENT
  Age: 55 Year
  Sex: Female

DRUGS (3)
  1. PACLITAXEL [Concomitant]
     Indication: METASTATIC BRONCHIAL CARCINOMA
  2. CARBOPLATIN [Concomitant]
     Indication: METASTATIC BRONCHIAL CARCINOMA
  3. AVASTIN [Suspect]
     Indication: LUNG ADENOCARCINOMA
     Route: 065

REACTIONS (1)
  - PNEUMOTHORAX [None]
